FAERS Safety Report 10281290 (Version 2)
Quarter: 2014Q3

REPORT INFORMATION
  Report Type: Spontaneous
  Country: US (occurrence: US)
  Receive Date: 20140707
  Receipt Date: 20140707
  Transmission Date: 20150326
  Serious: Yes (Hospitalization)
  Sender: FDA-Public Use
  Company Number: US-INCYTE CORPORATION-2012IN000869

PATIENT
  Age: 52 Year
  Sex: Female
  Weight: 63.49 kg

DRUGS (5)
  1. ASPIRIN. [Concomitant]
     Active Substance: ASPIRIN
     Dosage: 81 MG, UNK
  2. JAKAFI [Suspect]
     Active Substance: RUXOLITINIB
     Indication: MYELOFIBROSIS
     Dosage: 20 MG, BID
     Route: 048
     Dates: start: 20120418
  3. HYDREA [Concomitant]
     Active Substance: HYDROXYUREA
     Dosage: 500 MG, UNK
     Route: 048
     Dates: start: 201104
  4. HYDREA [Concomitant]
     Active Substance: HYDROXYUREA
     Dosage: 500 MG, BID
     Route: 048
     Dates: start: 1992
  5. JAKAFI [Suspect]
     Active Substance: RUXOLITINIB
     Indication: POLYCYTHAEMIA VERA
     Dosage: 5 MG, BID
     Route: 048
     Dates: start: 201311

REACTIONS (3)
  - White blood cell count decreased [Not Recovered/Not Resolved]
  - Stem cell transplant [Recovered/Resolved]
  - Platelet count decreased [Not Recovered/Not Resolved]

NARRATIVE: CASE EVENT DATE: 20120510
